FAERS Safety Report 25204941 (Version 1)
Quarter: 2025Q2

REPORT INFORMATION
  Report Type: Report from Study
  Country: GB (occurrence: GB)
  Receive Date: 20250416
  Receipt Date: 20250416
  Transmission Date: 20250717
  Serious: Yes (Other)
  Sender: ABBVIE
  Company Number: GB-ABBVIE-6230087

PATIENT
  Sex: Male

DRUGS (1)
  1. SKYRIZI [Suspect]
     Active Substance: RISANKIZUMAB-RZAA
     Indication: Crohn^s disease
     Dosage: SKYRIZI 360MG/2.4ML SOLUTION FOR INJECTION CARTRIDGE ON-BODY DEVICE?DOSE- 1.00 EA
     Route: 058
     Dates: start: 20241212

REACTIONS (3)
  - Systemic lupus erythematosus [Unknown]
  - White blood cell disorder [Unknown]
  - Unevaluable event [Unknown]
